FAERS Safety Report 8846776 (Version 2)
Quarter: 2013Q1

REPORT INFORMATION
  Report Type: Spontaneous
  Country: US (occurrence: None)
  Receive Date: 20121018
  Receipt Date: 20121024
  Transmission Date: 20140127
  Serious: Yes (Disabling, Other)
  Sender: FDA-Public Use
  Company Number: None

PATIENT
  Sex: Female
  Weight: 86.18 kg

DRUGS (2)
  1. TRIAMCINOLONE [Suspect]
     Indication: ARTHRALGIA
     Dates: start: 20120911, end: 20120911
  2. TRIAMCINOLONE [Suspect]
     Indication: PROCEDURAL PAIN
     Dates: start: 20120911, end: 20120911

REACTIONS (5)
  - Mastitis [None]
  - Fungal infection [None]
  - Breast pain [None]
  - Product quality issue [None]
  - Product compounding quality issue [None]
